FAERS Safety Report 20790191 (Version 1)
Quarter: 2022Q2

REPORT INFORMATION
  Report Type: 
  Country: US (occurrence: US)
  Receive Date: 20220505
  Receipt Date: 20220505
  Transmission Date: 20220721
  Serious: Yes (Hospitalization)
  Sender: FDA-Public Use
  Company Number: US-C B Fleet Co Inc-202011-US-004204

PATIENT
  Age: 79 Year
  Sex: Male

DRUGS (19)
  1. ASPIRIN [Suspect]
     Active Substance: ASPIRIN
     Indication: Product used for unknown indication
     Dosage: LOW DOSE DAILY
     Route: 048
  2. ENZALUTAMIDE [Suspect]
     Active Substance: ENZALUTAMIDE
     Indication: Prostate cancer
  3. ACARBOSE [Suspect]
     Active Substance: ACARBOSE
  4. BICALUTAMIDE [Suspect]
     Active Substance: BICALUTAMIDE
  5. COREG [Suspect]
     Active Substance: CARVEDILOL
  6. DULCOLAX NOS [Suspect]
     Active Substance: BISACODYL OR DOCUSATE SODIUM
  7. FUROSEMIDE [Suspect]
     Active Substance: FUROSEMIDE
  8. GLIPIZIDE [Suspect]
     Active Substance: GLIPIZIDE
  9. JANUVIA [Suspect]
     Active Substance: SITAGLIPTIN PHOSPHATE
  10. LISINOPRIL [Suspect]
     Active Substance: LISINOPRIL
  11. METFORMIN [Suspect]
     Active Substance: METFORMIN HYDROCHLORIDE
  12. PREDNISONE [Suspect]
     Active Substance: PREDNISONE
  13. SIMVASTATIN [Suspect]
     Active Substance: SIMVASTATIN
  14. SOTALOL [Suspect]
     Active Substance: SOTALOL
     Dosage: BID
  15. SPIRONOLACTONE [Suspect]
     Active Substance: SPIRONOLACTONE
  16. VITAMIN C [Suspect]
     Active Substance: ASCORBIC ACID
     Dosage: QD
  17. KLOR-CON [Suspect]
     Active Substance: POTASSIUM CHLORIDE
  18. ASPIRIN [Suspect]
     Active Substance: ASPIRIN
  19. CARVEDILOL [Suspect]
     Active Substance: CARVEDILOL
     Dosage: BID

REACTIONS (3)
  - Cardiac failure congestive [Not Recovered/Not Resolved]
  - Constipation [Not Recovered/Not Resolved]
  - Gastric disorder [Not Recovered/Not Resolved]
